FAERS Safety Report 13947289 (Version 2)
Quarter: 2017Q3

REPORT INFORMATION
  Report Type: Report from Study
  Country: US (occurrence: US)
  Receive Date: 20170907
  Receipt Date: 20170908
  Transmission Date: 20171128
  Serious: Yes (Other)
  Sender: FDA-Public Use
  Company Number: PHHY2016US185051

PATIENT

DRUGS (1)
  1. TRAVATAN Z [Suspect]
     Active Substance: TRAVOPROST
     Indication: PRODUCT USED FOR UNKNOWN INDICATION
     Route: 065

REACTIONS (5)
  - Macular oedema [Unknown]
  - Periorbital fat atrophy [Unknown]
  - Ocular surface disease [Unknown]
  - Ophthalmic herpes simplex [Unknown]
  - Ocular hyperaemia [Unknown]
